FAERS Safety Report 16913273 (Version 1)
Quarter: 2019Q4

REPORT INFORMATION
  Report Type: Report from Study
  Country: US (occurrence: US)
  Receive Date: 20191014
  Receipt Date: 20191014
  Transmission Date: 20200122
  Serious: Yes (Other)
  Sender: FDA-Public Use
  Company Number: US-JNJFOC-20190911810

PATIENT
  Age: 82 Year
  Sex: Female

DRUGS (3)
  1. COZAAR [Concomitant]
     Active Substance: LOSARTAN POTASSIUM
  2. IMBRUVICA [Suspect]
     Active Substance: IBRUTINIB
     Indication: NON-HODGKIN^S LYMPHOMA
     Dosage: 420 MG, QD
     Route: 048
     Dates: start: 20190826
  3. IMBRUVICA [Suspect]
     Active Substance: IBRUTINIB
     Route: 048

REACTIONS (14)
  - Rash [Unknown]
  - Nasal ulcer [Not Recovered/Not Resolved]
  - Diarrhoea [Unknown]
  - Blood pressure increased [Not Recovered/Not Resolved]
  - Pharyngeal haemorrhage [Unknown]
  - Inappropriate schedule of product administration [Unknown]
  - Dyspepsia [Unknown]
  - Off label use [Unknown]
  - Memory impairment [Unknown]
  - Skin ulcer [Recovering/Resolving]
  - Headache [Unknown]
  - Rash macular [Unknown]
  - Epistaxis [Unknown]
  - Asthenia [Unknown]

NARRATIVE: CASE EVENT DATE: 201909
